FAERS Safety Report 11251607 (Version 1)
Quarter: 2015Q3

REPORT INFORMATION
  Report Type: Spontaneous
  Country: US (occurrence: US)
  Receive Date: 20150708
  Receipt Date: 20150708
  Transmission Date: 20151125
  Serious: No
  Sender: FDA-Public Use
  Company Number: US-ELI_LILLY_AND_COMPANY-US201108004261

PATIENT
  Age: 52 Year
  Sex: Female
  Weight: 105 kg

DRUGS (13)
  1. LOVENOX [Concomitant]
     Active Substance: ENOXAPARIN SODIUM
     Dosage: 35 DAILY
  2. TOPROL XL [Concomitant]
     Active Substance: METOPROLOL SUCCINATE
  3. VENTOLIN [Concomitant]
     Active Substance: ALBUTEROL SULFATE
  4. PERCOCET [Concomitant]
     Active Substance: ACETAMINOPHEN\OXYCODONE HYDROCHLORIDE
     Indication: PAIN
     Route: 048
  5. CORTICOSTEROID NOS [Concomitant]
     Active Substance: CORTICOSTEROID NOS
     Dosage: UNK
     Dates: start: 20100310, end: 20110826
  6. OMEPRAZOLE. [Concomitant]
     Active Substance: OMEPRAZOLE
  7. FOLIC ACID. [Concomitant]
     Active Substance: FOLIC ACID
     Dosage: 1 G, QD
     Route: 048
     Dates: start: 20100304, end: 20110915
  8. OXYCONTIN [Concomitant]
     Active Substance: OXYCODONE HYDROCHLORIDE
     Indication: PAIN
     Dosage: UNK, BID
     Route: 048
  9. NEULASTA [Concomitant]
     Active Substance: PEGFILGRASTIM
     Dosage: UNK, EVERY 3 WEEKS
  10. VITAMIN B12 [Concomitant]
     Active Substance: CYANOCOBALAMIN
     Dosage: 1MG EVERY 9 WEEKS
     Route: 030
     Dates: start: 20100303, end: 20110825
  11. DECADRON [Concomitant]
     Active Substance: DEXAMETHASONE
     Dosage: 4 G, BID, 3 DAYS
     Route: 048
     Dates: start: 20101102
  12. COMPAZINE [Concomitant]
     Active Substance: PROCHLORPERAZINE MALEATE
     Indication: NAUSEA
     Dosage: 10 G, UNK
     Route: 048
  13. ALIMTA [Suspect]
     Active Substance: PEMETREXED DISODIUM
     Indication: NON-SMALL CELL LUNG CANCER
     Dosage: 1090 MG, EVERY THREE WEEKS
     Route: 042
     Dates: start: 20100311, end: 20110915

REACTIONS (1)
  - Glossitis [Recovered/Resolved]

NARRATIVE: CASE EVENT DATE: 20110726
